FAERS Safety Report 5794822-2 (Version None)
Quarter: 2008Q2

REPORT INFORMATION
  Report Type: 
  Country: None (occurrence: None)
  Receive Date: 20080630
  Receipt Date: 20080620
  Transmission Date: 20081010
  Serious: Yes (Other)
  Sender: FDA-Public Use
  Company Number: B0491949A

PATIENT
  Age: 23 Year
  Sex: Female

DRUGS (3)
  1. LAMICTAL [Suspect]
     Indication: EPILEPSY
     Dosage: 100MG TWICE PER DAY
     Route: 048
  2. TRIPHASIL-21 [Suspect]
     Indication: CONTRACEPTION
     Dosage: 1TAB PER DAY
     Route: 048
     Dates: end: 20070101
  3. ACIDE FOLIQUE [Concomitant]
     Indication: DRUG USE FOR UNKNOWN INDICATION
     Route: 065

REACTIONS (5)
  - DRUG EXPOSURE DURING PREGNANCY [None]
  - DRUG INTERACTION [None]
  - LIVE BIRTH [None]
  - PREGNANCY [None]
  - UNINTENDED PREGNANCY [None]
